FAERS Safety Report 4818809-9 (Version None)
Quarter: 2005Q4

REPORT INFORMATION
  Report Type: 
  Country: None (occurrence: None)
  Receive Date: 20051101
  Receipt Date: 20051021
  Transmission Date: 20060501
  Serious: Yes (Disabling, Other)
  Sender: FDA-Public Use
  Company Number: 2005147032

PATIENT
  Sex: Female
  Weight: 136.0791 kg

DRUGS (5)
  1. PROCARDIA [Suspect]
     Indication: HYPERTENSION
     Dosage: 90 MG (90 MG, DAILY INTERVAL: EVERY DAY), UNKNOWN
     Route: 065
  2. LIPITOR [Suspect]
     Indication: BLOOD CHOLESTEROL INCREASED
     Dosage: 10 MG (10 MG, DAILY INTERVAL: EVERY DAY), UNKNOWN
     Route: 065
  3. DRUG, UNSPECIFIED (DRUG, UNSPECIFIED) [Suspect]
     Indication: ILL-DEFINED DISORDER
     Dosage: UNKNOWN
     Route: 065
  4. OTHER DRUGS FOR DISORD. OF THE MUSCULO-SKELET.SYST (OTHER DRUGS FOR DI [Suspect]
     Indication: ARTHRITIS
     Dosage: UNKNOWN
     Route: 065
  5. ZOLOFT [Concomitant]

REACTIONS (8)
  - ARTHRITIS [None]
  - BLOOD CHOLESTEROL INCREASED [None]
  - CHOLELITHIASIS [None]
  - ECONOMIC PROBLEM [None]
  - HEPATIC FUNCTION ABNORMAL [None]
  - IMPAIRED WORK ABILITY [None]
  - MALAISE [None]
  - MOBILITY DECREASED [None]
